FAERS Safety Report 23591529 (Version 1)
Quarter: 2024Q1

REPORT INFORMATION
  Report Type: Spontaneous
  Country: US (occurrence: None)
  Receive Date: 20240302
  Receipt Date: 20240302
  Transmission Date: 20240409
  Serious: Yes (Hospitalization)
  Sender: FDA-Public Use
  Company Number: None

PATIENT
  Sex: Female

DRUGS (4)
  1. AMBRISENTAN [Suspect]
     Active Substance: AMBRISENTAN
     Indication: Pulmonary arterial hypertension
     Dosage: FREQUENCY : DAILY;?
     Route: 048
     Dates: start: 202306
  2. SILDENAFIL CITRATE [Suspect]
     Active Substance: SILDENAFIL CITRATE
     Dosage: FREQUENCY : TWICE A DAY;?
     Route: 048
     Dates: start: 202307
  3. UPTRAVI [Concomitant]
  4. TYVASO DPI TITRAT KIT POW [Concomitant]

REACTIONS (2)
  - Right ventricular failure [None]
  - Condition aggravated [None]
